FAERS Safety Report 10021383 (Version 3)
Quarter: 2014Q2

REPORT INFORMATION
  Report Type: Spontaneous
  Country: GB (occurrence: None)
  Receive Date: 20140313
  Receipt Date: 20140425
  Transmission Date: 20141212
  Serious: Yes (Hospitalization)
  Sender: FDA-Public Use
  Company Number: KAD201403-000296

PATIENT
  Sex: Female

DRUGS (2)
  1. RIBAVIRIN (RIBAVIRIN) [Suspect]
  2. SOFOSBUVIR [Suspect]

REACTIONS (2)
  - Exposure via partner [None]
  - Abortion spontaneous [None]
